FAERS Safety Report 8783204 (Version 1)
Quarter: 2012Q4

REPORT INFORMATION
  Report Type: 
  Country: US (occurrence: US)
  Receive Date: 20120913
  Receipt Date: 20120913
  Transmission Date: 20130627
  Serious: Yes (Other)
  Sender: FDA-Public Use
  Company Number: US-ROCHE-1119891

PATIENT
  Sex: Female

DRUGS (2)
  1. TARCEVA [Suspect]
     Indication: RENAL CANCER
     Route: 065
  2. AVASTIN [Suspect]
     Indication: RENAL CANCER
     Route: 065

REACTIONS (2)
  - Cerebrovascular accident [Unknown]
  - Disease progression [Unknown]
